FAERS Safety Report 6252866-0 (Version None)
Quarter: 2009Q2

REPORT INFORMATION
  Report Type: 
  Country: None (occurrence: None)
  Receive Date: 20090629
  Receipt Date: 20090629
  Transmission Date: 20091009
  Serious: No
  Sender: FDA-Public Use
  Company Number: None

PATIENT
  Age: 73 Year
  Sex: Male

DRUGS (1)
  1. DEXTROSE/HEPARIN [Suspect]
     Indication: PERIPHERAL VASCULAR DISORDER
     Dosage: 1500 UNITS PER HOUR IV
     Route: 042
     Dates: start: 20090502, end: 20090510

REACTIONS (5)
  - ACTIVATED PARTIAL THROMBOPLASTIN TIME PROLONGED [None]
  - HAEMATOCRIT DECREASED [None]
  - HAEMORRHAGE [None]
  - HYPOTENSION [None]
  - RETROPERITONEAL HAEMATOMA [None]
